FAERS Safety Report 10688297 (Version 2)
Quarter: 2015Q1

REPORT INFORMATION
  Report Type: Spontaneous
  Country: FR (occurrence: FR)
  Receive Date: 20150102
  Receipt Date: 20150102
  Transmission Date: 20150720
  Serious: Yes (Death, Other)
  Sender: FDA-Public Use
  Company Number: FR-CELGENE-056-21880-10121982

PATIENT

DRUGS (2)
  1. REVLIMID [Suspect]
     Active Substance: LENALIDOMIDE
     Dosage: 5-10
     Route: 048
  2. REVLIMID [Suspect]
     Active Substance: LENALIDOMIDE
     Indication: MYELODYSPLASTIC SYNDROME
     Dosage: 5-10
     Route: 048

REACTIONS (9)
  - Acute myeloid leukaemia [Fatal]
  - Infection [Fatal]
  - Myelodysplastic syndrome [Unknown]
  - Oedema [Unknown]
  - Neutropenia [Unknown]
  - Fatigue [Unknown]
  - Cytopenia [Unknown]
  - No therapeutic response [Unknown]
  - Thrombocytopenia [Unknown]
